FAERS Safety Report 13613927 (Version 1)
Quarter: 2017Q2

REPORT INFORMATION
  Report Type: Spontaneous
  Country: US (occurrence: US)
  Receive Date: 20170606
  Receipt Date: 20170606
  Transmission Date: 20170830
  Serious: No
  Sender: FDA-Public Use
  Company Number: US-TEVA-736438ACC

PATIENT

DRUGS (1)
  1. MINOXIDIL TOPICAL SOLUTION USP 2% [Suspect]
     Active Substance: MINOXIDIL
     Indication: ALOPECIA
     Dosage: 4 ML DAILY;
     Route: 061
     Dates: start: 20161019, end: 20161109

REACTIONS (1)
  - Alopecia [Recovered/Resolved]
